FAERS Safety Report 10986646 (Version 2)
Quarter: 2015Q2

REPORT INFORMATION
  Report Type: Spontaneous
  Country: US (occurrence: US)
  Receive Date: 20150404
  Receipt Date: 20150525
  Transmission Date: 20150821
  Serious: No
  Sender: FDA-Public Use
  Company Number: US-JNJFOC-20131205266

PATIENT
  Age: 30 Year
  Sex: Female
  Weight: 68.04 kg

DRUGS (3)
  1. IMODIUM MULTI-SYMPTOM RELIEF [Suspect]
     Active Substance: DIMETHICONE\LOPERAMIDE HYDROCHLORIDE
     Route: 048
  2. IMODIUM MULTI-SYMPTOM RELIEF [Suspect]
     Active Substance: DIMETHICONE\LOPERAMIDE HYDROCHLORIDE
     Indication: DIARRHOEA
     Route: 048
  3. BIOTIN [Concomitant]
     Active Substance: BIOTIN
     Indication: HAIR GROWTH ABNORMAL
     Dosage: OCCASIONAL USE
     Route: 065

REACTIONS (7)
  - Product size issue [Unknown]
  - Discomfort [Unknown]
  - Retching [Unknown]
  - Vomiting [Unknown]
  - Choking [Unknown]
  - Lacrimation increased [Unknown]
  - Foreign body [Unknown]
